FAERS Safety Report 24336753 (Version 1)
Quarter: 2024Q3

REPORT INFORMATION
  Report Type: Report from Study
  Country: CO (occurrence: CO)
  Receive Date: 20240919
  Receipt Date: 20240919
  Transmission Date: 20241017
  Serious: Yes (Hospitalization)
  Sender: BIOVITRUM
  Company Number: CO-AstraZeneca-2024A212108

PATIENT
  Age: 54 Week
  Sex: Male
  Weight: 8.5 kg

DRUGS (1)
  1. SYNAGIS [Suspect]
     Active Substance: PALIVIZUMAB
     Indication: Respiratory disorder prophylaxis
     Dosage: MONTHLY
     Route: 030
     Dates: start: 20240831

REACTIONS (2)
  - Pyrexia [Recovering/Resolving]
  - Malaise [Recovering/Resolving]

NARRATIVE: CASE EVENT DATE: 20240904
